FAERS Safety Report 12858217 (Version 1)
Quarter: 2016Q4

REPORT INFORMATION
  Report Type: Spontaneous
  Country: AT (occurrence: AT)
  Receive Date: 20161018
  Receipt Date: 20161018
  Transmission Date: 20170207
  Serious: Yes (Disabling, Other)
  Sender: FDA-Public Use
  Company Number: AT-ELI_LILLY_AND_COMPANY-AT201610003071

PATIENT
  Age: 49 Year
  Sex: Male
  Weight: 95 kg

DRUGS (6)
  1. STRATTERA [Suspect]
     Active Substance: ATOMOXETINE HYDROCHLORIDE
     Indication: ATTENTION DEFICIT/HYPERACTIVITY DISORDER
     Dosage: 18 MG, UNKNOWN
     Route: 048
     Dates: start: 20160427, end: 20160429
  2. BLOPRESS [Concomitant]
     Active Substance: CANDESARTAN CILEXETIL
     Indication: HYPERTENSION
     Dosage: 8 MG, UNKNOWN
     Route: 065
     Dates: start: 20160308
  3. DOMINAL (PROTHIPENDYL HYDROCHLORIDE) [Concomitant]
     Active Substance: PROTHIPENDYL HYDROCHLORIDE
     Indication: SLEEP DISORDER
     Dosage: 80 MG, UNKNOWN
     Route: 048
     Dates: start: 2015
  4. TRITTICO XR [Suspect]
     Active Substance: TRAZODONE HYDROCHLORIDE
     Indication: SLEEP DISORDER
  5. TRITTICO XR [Suspect]
     Active Substance: TRAZODONE HYDROCHLORIDE
     Indication: DEPRESSION
     Dosage: 150 MG, UNKNOWN
     Route: 048
     Dates: start: 2001, end: 20160501
  6. CITALOPRAM [Concomitant]
     Active Substance: CITALOPRAM HYDROBROMIDE
     Indication: DEPRESSION
     Dosage: 20 MG, UNKNOWN
     Route: 048
     Dates: start: 20160309

REACTIONS (3)
  - Priapism [Recovered/Resolved with Sequelae]
  - Erectile dysfunction [Not Recovered/Not Resolved]
  - Peyronie^s disease [Unknown]

NARRATIVE: CASE EVENT DATE: 20160429
